FAERS Safety Report 20360452 (Version 1)
Quarter: 2022Q1

REPORT INFORMATION
  Report Type: Other
  Country: GB (occurrence: GB)
  Receive Date: 20220121
  Receipt Date: 20220121
  Transmission Date: 20220423
  Serious: Yes (Other)
  Sender: FDA-Public Use
  Company Number: None

PATIENT

DRUGS (2)
  1. MONTELUKAST SODIUM [Suspect]
     Active Substance: MONTELUKAST SODIUM
     Indication: Asthma
     Dosage: 10 MILLIGRAM, UNK
     Route: 048
     Dates: start: 20220104, end: 20220110
  2. PREDNISONE [Concomitant]
     Active Substance: PREDNISONE
     Indication: Ill-defined disorder
     Dosage: UNK
     Route: 065

REACTIONS (6)
  - Adverse drug reaction [Recovering/Resolving]
  - Anxiety [Recovering/Resolving]
  - Scratch [Unknown]
  - Obsessive thoughts [Unknown]
  - Sleep terror [Unknown]
  - Restlessness [Unknown]

NARRATIVE: CASE EVENT DATE: 20220105
